FAERS Safety Report 6804864-3 (Version None)
Quarter: 2010Q2

REPORT INFORMATION
  Report Type: 
  Country: None (occurrence: None)
  Receive Date: 20100628
  Receipt Date: 20070618
  Transmission Date: 20101027
  Serious: Yes (Other)
  Sender: FDA-Public Use
  Company Number: US-PFIZER INC-2007050269

PATIENT
  Sex: Female
  Weight: 59.545 kg

DRUGS (9)
  1. GEODON [Suspect]
     Dates: start: 20070615
  2. WELLBUTRIN XL [Concomitant]
  3. BUSPAR [Concomitant]
  4. ATIVAN [Concomitant]
  5. BENTYL [Concomitant]
  6. MAXALT [Concomitant]
  7. REGLAN [Concomitant]
  8. RESTORIL [Concomitant]
  9. DEPAKOTE [Concomitant]

REACTIONS (2)
  - DYSPHAGIA [None]
  - SWOLLEN TONGUE [None]
